FAERS Safety Report 4918594-6 (Version None)
Quarter: 2006Q1

REPORT INFORMATION
  Report Type: 
  Country: None (occurrence: None)
  Receive Date: 20060216
  Receipt Date: 20051123
  Transmission Date: 20060701
  Serious: Yes (Other)
  Sender: FDA-Public Use
  Company Number: US200602001481

PATIENT
  Age: 88 Year
  Sex: Female

DRUGS (4)
  1. FORTEO [Suspect]
     Indication: OSTEOPOROSIS
     Dates: start: 20050101, end: 20050101
  2. FORTEO [Concomitant]
  3. LIPITOR [Concomitant]
  4. ACEON [Concomitant]

REACTIONS (2)
  - CEREBRAL HAEMATOMA [None]
  - FALL [None]
